FAERS Safety Report 14382343 (Version 1)
Quarter: 2018Q1

REPORT INFORMATION
  Report Type: Spontaneous
  Country: US (occurrence: US)
  Receive Date: 20180112
  Receipt Date: 20180112
  Transmission Date: 20180509
  Serious: No
  Sender: FDA-Public Use
  Company Number: US-PERRIGO-17US001256

PATIENT
  Sex: Female

DRUGS (1)
  1. IBUPROFEN. [Suspect]
     Active Substance: IBUPROFEN
     Indication: PAIN
     Dosage: 600 TO 800 MG, EVERY 2 HOURS (TOTAL OF 20 TABLETS WITHIN 24 HOURS)
     Route: 048
     Dates: start: 20170131, end: 20170201

REACTIONS (5)
  - Vomiting [Unknown]
  - Overdose [Recovered/Resolved]
  - Nausea [Unknown]
  - Dizziness [Unknown]
  - Inappropriate schedule of drug administration [Recovered/Resolved]

NARRATIVE: CASE EVENT DATE: 2017
